FAERS Safety Report 9457484 (Version 1)
Quarter: 2013Q3

REPORT INFORMATION
  Report Type: Spontaneous
  Country: US (occurrence: None)
  Receive Date: 20130812
  Receipt Date: 20130812
  Transmission Date: 20140515
  Serious: Yes (Other)
  Sender: FDA-Public Use
  Company Number: None

PATIENT
  Age: 60 Month
  Sex: Female
  Weight: 81.65 kg

DRUGS (1)
  1. CYCLOBENZAPRINE HCL [Suspect]
     Indication: BACK PAIN
     Route: 048
     Dates: start: 20130808, end: 20130814

REACTIONS (6)
  - Pruritus [None]
  - Face oedema [None]
  - Oedema [None]
  - Eye swelling [None]
  - Lacrimation increased [None]
  - VIIth nerve paralysis [None]
